FAERS Safety Report 16295904 (Version 2)
Quarter: 2019Q2

REPORT INFORMATION
  Report Type: Spontaneous
  Country: PR (occurrence: PR)
  Receive Date: 20190510
  Receipt Date: 20190621
  Transmission Date: 20190711
  Serious: Yes (Hospitalization, Other)
  Sender: FDA-Public Use
  Company Number: PR-BAYER-2019-088766

PATIENT
  Age: 70 Year
  Sex: Female
  Weight: 85.7 kg

DRUGS (15)
  1. SELONSERTIB [Concomitant]
     Active Substance: SELONSERTIB
     Indication: NON-ALCOHOLIC STEATOHEPATITIS
     Dosage: 18 MG, QD
     Route: 048
     Dates: start: 20180912, end: 20190329
  2. RESTORIL [CHLORMEZANONE] [Concomitant]
     Active Substance: CHLORMEZANONE
     Dosage: UNK
     Dates: start: 2013
  3. TOPROL XL [Concomitant]
     Active Substance: METOPROLOL SUCCINATE
     Dosage: UNK
     Dates: start: 1998
  4. VALSARTAN. [Concomitant]
     Active Substance: VALSARTAN
     Dosage: UNK
     Dates: start: 2003
  5. SINGULAIR [Concomitant]
     Active Substance: MONTELUKAST SODIUM
     Dosage: UNK
     Dates: start: 1998
  6. SELONSERTIB [Concomitant]
     Active Substance: SELONSERTIB
     Indication: NON-ALCOHOLIC STEATOHEPATITIS
     Dosage: 30 UNK
     Route: 048
     Dates: start: 20180912, end: 20190329
  7. SELONSERTIB [Concomitant]
     Active Substance: SELONSERTIB
     Indication: NON-ALCOHOLIC STEATOHEPATITIS
     Dosage: 20 UNK
     Route: 048
     Dates: start: 20180912, end: 20190329
  8. PROZAC [Concomitant]
     Active Substance: FLUOXETINE HYDROCHLORIDE
     Dosage: UNK
     Dates: start: 2013
  9. KLONOPIN [Concomitant]
     Active Substance: CLONAZEPAM
     Dosage: UNK
     Dates: start: 2013
  10. ULTRAM [Concomitant]
     Active Substance: TRAMADOL HYDROCHLORIDE
     Dosage: UNK
     Dates: start: 2012
  11. NAPROXEN SODIUM ({= 220 MG) [Suspect]
     Active Substance: NAPROXEN SODIUM
     Dosage: UNK
     Route: 048
     Dates: start: 20190328, end: 20190402
  12. INSULIN [Concomitant]
     Active Substance: INSULIN NOS
     Dosage: UNK
     Dates: start: 1998
  13. NEURONTIN [Concomitant]
     Active Substance: GABAPENTIN
     Dosage: UNK
     Dates: start: 2012
  14. FUROSEMIDE. [Concomitant]
     Active Substance: FUROSEMIDE
     Dosage: UNK
     Dates: start: 20190122
  15. PREVACID [Concomitant]
     Active Substance: LANSOPRAZOLE
     Dosage: UNK
     Dates: start: 2017

REACTIONS (5)
  - Gastric ulcer [Recovering/Resolving]
  - Nausea [None]
  - Haemoglobin decreased [Unknown]
  - Faeces discoloured [None]
  - Asthenia [None]

NARRATIVE: CASE EVENT DATE: 20190330
